FAERS Safety Report 9357470 (Version 1)
Quarter: 2013Q2

REPORT INFORMATION
  Report Type: Report from Study
  Country: BR (occurrence: BR)
  Receive Date: 20130620
  Receipt Date: 20130620
  Transmission Date: 20140414
  Serious: Yes (Other)
  Sender: FDA-Public Use
  Company Number: PHHY2013BR061956

PATIENT
  Sex: Female
  Weight: 74 kg

DRUGS (5)
  1. EXJADE [Suspect]
     Indication: SERUM FERRITIN INCREASED
     Dosage: 1250 MG, UNK  (1DF 250MG/ 2 DF 500MG)
  2. EXJADE [Suspect]
     Dosage: UNK UKN, UNK
     Dates: start: 201301
  3. PURAN T4 [Concomitant]
     Dosage: UNK UKN, UNK
  4. NOVOMIX [Concomitant]
     Dosage: UNK
  5. TRAYENTA [Concomitant]
     Dosage: UNK UKN, UNK

REACTIONS (6)
  - Bone marrow disorder [Unknown]
  - Renal disorder [Recovering/Resolving]
  - Weight decreased [Unknown]
  - Decreased appetite [Recovering/Resolving]
  - Feeling abnormal [Unknown]
  - Nephrolithiasis [Recovering/Resolving]
